FAERS Safety Report 10350532 (Version 4)
Quarter: 2014Q3

REPORT INFORMATION
  Report Type: Report from Study
  Country: KR (occurrence: KR)
  Receive Date: 20140730
  Receipt Date: 20140929
  Transmission Date: 20150326
  Serious: Yes (Hospitalization, Other)
  Sender: FDA-Public Use
  Company Number: KR-PFIZER INC-2011042207

PATIENT
  Age: 55 Year
  Sex: Male
  Weight: 81.7 kg

DRUGS (10)
  1. ULTRACET [Concomitant]
     Active Substance: ACETAMINOPHEN\TRAMADOL HYDROCHLORIDE
     Indication: RHEUMATOID ARTHRITIS
     Dosage: 1 TABLET 4X/DAY
     Route: 048
     Dates: start: 19990419
  2. SOLONDO [Suspect]
     Active Substance: PREDNISOLONE
     Dosage: 15 MG, 1X/DAY, TABLET, STRESS DOSE
     Route: 048
     Dates: start: 20110226
  3. NORVASC [Concomitant]
     Active Substance: AMLODIPINE BESYLATE
     Indication: HYPERTENSION
     Dosage: 5 MG, 1X/DAY
     Route: 048
     Dates: start: 20110117, end: 20110304
  4. NAXEN-F [Concomitant]
     Indication: RHEUMATOID ARTHRITIS
     Dosage: 500 MG, 3X/DAY
     Route: 048
     Dates: start: 19990419
  5. ETRAVIL [Concomitant]
     Active Substance: AMITRIPTYLINE HYDROCHLORIDE
     Indication: RHEUMATOID ARTHRITIS
     Dosage: 20 MG, BEFORE SLEEP
     Route: 048
     Dates: start: 19990802
  6. CEFACLOR-SR [Concomitant]
     Indication: CELLULITIS
     Dosage: 375 MG, 3X/DAY
     Route: 048
     Dates: start: 20101231, end: 20110115
  7. TOFACITINIB CITRATE [Suspect]
     Active Substance: TOFACITINIB CITRATE
     Indication: RHEUMATOID ARTHRITIS
     Dosage: 10 MG, 2X/DAY
     Route: 048
     Dates: start: 20100913, end: 20110223
  8. SOLONDO [Suspect]
     Active Substance: PREDNISOLONE
     Indication: RHEUMATOID ARTHRITIS
     Dosage: 7.5 MG, TABLET, 1X/DAY
     Route: 048
     Dates: start: 20100414, end: 20110225
  9. ALSOBEN [Concomitant]
     Indication: GASTRITIS PROPHYLAXIS
     Dosage: 0.2 MG, 3X/DAY
     Route: 048
     Dates: start: 19990419
  10. TRICEF [Concomitant]
     Indication: CELLULITIS
     Dosage: 500 MG, 4X/DAY
     Route: 048
     Dates: start: 20110117, end: 20110124

REACTIONS (9)
  - Intestinal fistula [Recovered/Resolved]
  - Meningitis [Recovered/Resolved]
  - Psoas abscess [Recovered/Resolved]
  - Pachymeningitis [Recovered/Resolved]
  - Ileus paralytic [Recovered/Resolved]
  - Renal abscess [Recovered/Resolved]
  - Infective spondylitis [Recovered/Resolved with Sequelae]
  - Extradural abscess [Recovered/Resolved]
  - Staphylococcal bacteraemia [Recovered/Resolved]

NARRATIVE: CASE EVENT DATE: 20110201
